FAERS Safety Report 4614078-3 (Version None)
Quarter: 2005Q1

REPORT INFORMATION
  Report Type: 
  Country: None (occurrence: None)
  Receive Date: 20050315
  Receipt Date: 20030408
  Transmission Date: 20050727
  Serious: Yes (Life-Threatening, Hospitalization)
  Sender: FDA-Public Use
  Company Number: 5136

PATIENT
  Age: 51 Year
  Sex: Female
  Weight: 63.5036 kg

DRUGS (5)
  1. PAMIDRONATE DISODIUM [Suspect]
     Indication: BREAST CANCER METASTATIC
     Dosage: 90 MG PER_CYCLE IV
     Route: 042
     Dates: start: 19981001, end: 20020401
  2. PAMIDRONATE DISODIUM [Suspect]
     Indication: METASTASES TO BONE
     Dosage: 90 MG PER_CYCLE IV
     Route: 042
     Dates: start: 19981001, end: 20020401
  3. VOLTAREN [Concomitant]
  4. DYAZIDE [Concomitant]
  5. FEMARA [Concomitant]

REACTIONS (4)
  - NEPHROSCLEROSIS [None]
  - PERITONEAL DIALYSIS [None]
  - RENAL FAILURE ACUTE [None]
  - RENAL IMPAIRMENT [None]
